FAERS Safety Report 10072268 (Version 1)
Quarter: 2014Q2

REPORT INFORMATION
  Report Type: Spontaneous
  Country: FR (occurrence: FR)
  Receive Date: 20140411
  Receipt Date: 20140411
  Transmission Date: 20141212
  Serious: Yes (Life-Threatening)
  Sender: FDA-Public Use
  Company Number: FR-SA-2014SA044035

PATIENT
  Age: 89 Year
  Sex: Female

DRUGS (7)
  1. CORDARONE [Suspect]
     Indication: ATRIAL FIBRILLATION
     Route: 048
     Dates: start: 20140225, end: 20140303
  2. LASILIX SPECIAL [Suspect]
     Indication: CARDIAC FAILURE
     Route: 048
     Dates: start: 201401
  3. TEMERIT [Suspect]
     Indication: CARDIAC FAILURE
     Route: 048
     Dates: end: 201403
  4. TAHOR [Concomitant]
     Route: 048
  5. AMLOR [Concomitant]
     Indication: HYPERTENSION
     Route: 048
  6. PRADAXA [Concomitant]
     Indication: ATRIAL FIBRILLATION
     Route: 048
     Dates: start: 201312, end: 20140306
  7. LEVOTHYROX [Concomitant]
     Dosage: DOSE: 50-75 MG DAILY
     Route: 048

REACTIONS (2)
  - Electrocardiogram QT prolonged [Recovered/Resolved]
  - Hypokalaemia [Recovered/Resolved]
